FAERS Safety Report 5452301-6 (Version None)
Quarter: 2007Q3

REPORT INFORMATION
  Report Type: 
  Country: None (occurrence: None)
  Receive Date: 20070914
  Receipt Date: 20070904
  Transmission Date: 20080115
  Serious: Yes (Other)
  Sender: FDA-Public Use
  Company Number: HQWYE032506SEP07

PATIENT
  Sex: Female
  Weight: 70.37 kg

DRUGS (2)
  1. EFFEXOR XR [Suspect]
     Indication: DEPRESSION
     Route: 048
     Dates: start: 20040101, end: 20050101
  2. EFFEXOR XR [Suspect]
     Dosage: ^FOR THE PAST TWO YEARS SHE HAS ATTEMPTED TO WEAN HERSELF OFF THE DRUG^
     Route: 048
     Dates: start: 20050101, end: 20070902

REACTIONS (7)
  - CHEST PAIN [None]
  - CRYING [None]
  - DEPENDENCE [None]
  - DRUG WITHDRAWAL SYNDROME [None]
  - PAIN [None]
  - TUNNEL VISION [None]
  - UNEVALUABLE EVENT [None]
